FAERS Safety Report 5115155-3 (Version None)
Quarter: 2006Q3

REPORT INFORMATION
  Report Type: 
  Country: None (occurrence: None)
  Receive Date: 20060926
  Receipt Date: 20060915
  Transmission Date: 20061208
  Serious: Yes (Hospitalization)
  Sender: FDA-Public Use
  Company Number: FR-SANOFI-SYNTHELABO-A02200602370

PATIENT
  Age: 38 Year
  Sex: Male

DRUGS (4)
  1. DEXTROMORAMIDE [Suspect]
     Indication: DRUG ABUSER
     Dosage: 500 MG
     Route: 048
  2. ZOLPIDEM TARTRATE [Suspect]
     Indication: DRUG ABUSER
     Dosage: PROGRESSIVE INCREASE UP TO 1000 MG DAILY
     Route: 048
  3. ZOLPIDEM TARTRATE [Suspect]
     Dosage: 40 MG EACH HOUR FOR 10 HOURS
     Route: 048
  4. METHADONE HCL [Concomitant]
     Dosage: FROM 200 MG TO 320 MG DAILY
     Route: 048

REACTIONS (4)
  - DRUG ABUSER [None]
  - DRUG HALF-LIFE REDUCED [None]
  - DRUG LEVEL INCREASED [None]
  - DRUG WITHDRAWAL SYNDROME [None]
